FAERS Safety Report 25441622 (Version 1)
Quarter: 2025Q2

REPORT INFORMATION
  Report Type: Spontaneous
  Country: FR (occurrence: FR)
  Receive Date: 20250616
  Receipt Date: 20250616
  Transmission Date: 20250717
  Serious: Yes (Life-Threatening, Other)
  Sender: MYLAN
  Company Number: None

PATIENT
  Age: 72 Year
  Sex: Female

DRUGS (28)
  1. DEXAMETHASONE [Suspect]
     Active Substance: DEXAMETHASONE
     Indication: Surgery
     Dates: start: 20250124, end: 20250124
  2. DEXAMETHASONE [Suspect]
     Active Substance: DEXAMETHASONE
     Route: 042
     Dates: start: 20250124, end: 20250124
  3. DEXAMETHASONE [Suspect]
     Active Substance: DEXAMETHASONE
     Route: 042
     Dates: start: 20250124, end: 20250124
  4. DEXAMETHASONE [Suspect]
     Active Substance: DEXAMETHASONE
     Dates: start: 20250124, end: 20250124
  5. ROCURONIUM [Suspect]
     Active Substance: ROCURONIUM BROMIDE
     Indication: General anaesthesia
     Dates: start: 20250124, end: 20250124
  6. ROCURONIUM [Suspect]
     Active Substance: ROCURONIUM BROMIDE
     Indication: Hysterectomy
     Route: 042
     Dates: start: 20250124, end: 20250124
  7. ROCURONIUM [Suspect]
     Active Substance: ROCURONIUM BROMIDE
     Route: 042
     Dates: start: 20250124, end: 20250124
  8. ROCURONIUM [Suspect]
     Active Substance: ROCURONIUM BROMIDE
     Dates: start: 20250124, end: 20250124
  9. REMIFENTANIL [Suspect]
     Active Substance: REMIFENTANIL
     Indication: General anaesthesia
     Dates: start: 20250124, end: 20250124
  10. REMIFENTANIL [Suspect]
     Active Substance: REMIFENTANIL
     Indication: Hysterectomy
     Route: 042
     Dates: start: 20250124, end: 20250124
  11. REMIFENTANIL [Suspect]
     Active Substance: REMIFENTANIL
     Route: 042
     Dates: start: 20250124, end: 20250124
  12. REMIFENTANIL [Suspect]
     Active Substance: REMIFENTANIL
     Dates: start: 20250124, end: 20250124
  13. PROPOFOL [Suspect]
     Active Substance: PROPOFOL
     Indication: General anaesthesia
     Dates: start: 20250124, end: 20250124
  14. PROPOFOL [Suspect]
     Active Substance: PROPOFOL
     Indication: Hysterectomy
     Route: 042
     Dates: start: 20250124, end: 20250124
  15. PROPOFOL [Suspect]
     Active Substance: PROPOFOL
     Route: 042
     Dates: start: 20250124, end: 20250124
  16. PROPOFOL [Suspect]
     Active Substance: PROPOFOL
     Dates: start: 20250124, end: 20250124
  17. KETAMINE [Suspect]
     Active Substance: KETAMINE
     Indication: General anaesthesia
     Dates: start: 20250124, end: 20250124
  18. KETAMINE [Suspect]
     Active Substance: KETAMINE
     Indication: Hysterectomy
     Route: 042
     Dates: start: 20250124, end: 20250124
  19. KETAMINE [Suspect]
     Active Substance: KETAMINE
     Route: 042
     Dates: start: 20250124, end: 20250124
  20. KETAMINE [Suspect]
     Active Substance: KETAMINE
     Dates: start: 20250124, end: 20250124
  21. CEFOXITIN [Suspect]
     Active Substance: CEFOXITIN SODIUM
     Indication: Antibiotic prophylaxis
     Dates: start: 20250124, end: 20250124
  22. CEFOXITIN [Suspect]
     Active Substance: CEFOXITIN SODIUM
     Indication: Hysterectomy
     Route: 042
     Dates: start: 20250124, end: 20250124
  23. CEFOXITIN [Suspect]
     Active Substance: CEFOXITIN SODIUM
     Route: 042
     Dates: start: 20250124, end: 20250124
  24. CEFOXITIN [Suspect]
     Active Substance: CEFOXITIN SODIUM
     Dates: start: 20250124, end: 20250124
  25. TRANEXAMIC ACID [Suspect]
     Active Substance: TRANEXAMIC ACID
     Indication: Haemorrhage prophylaxis
     Dates: start: 20250124, end: 20250124
  26. TRANEXAMIC ACID [Suspect]
     Active Substance: TRANEXAMIC ACID
     Indication: Hysterectomy
     Route: 042
     Dates: start: 20250124, end: 20250124
  27. TRANEXAMIC ACID [Suspect]
     Active Substance: TRANEXAMIC ACID
     Route: 042
     Dates: start: 20250124, end: 20250124
  28. TRANEXAMIC ACID [Suspect]
     Active Substance: TRANEXAMIC ACID
     Dates: start: 20250124, end: 20250124

REACTIONS (4)
  - Anaphylactic reaction [Recovered/Resolved]
  - Hypotension [Recovered/Resolved]
  - Oxygen saturation decreased [Recovered/Resolved]
  - Tachycardia [Recovered/Resolved]

NARRATIVE: CASE EVENT DATE: 20250124
